FAERS Safety Report 10186525 (Version 2)
Quarter: 2014Q2

REPORT INFORMATION
  Report Type: Spontaneous
  Country: US (occurrence: US)
  Receive Date: 20140521
  Receipt Date: 20140609
  Transmission Date: 20141212
  Serious: Yes (Death, Hospitalization)
  Sender: FDA-Public Use
  Company Number: US-B.I. PHARMACEUTICALS,INC./RIDGEFIELD-2014-BI-21973BP

PATIENT
  Age: 75 Year
  Sex: Female

DRUGS (24)
  1. DULCOLAX SUPPOSITORY [Suspect]
     Indication: CONSTIPATION
     Route: 054
     Dates: start: 2012
  2. METOPROLOL [Concomitant]
     Indication: HYPERTENSION
     Dosage: 25 MG
     Route: 065
  3. COZAR [Concomitant]
     Dosage: 25 MG
     Route: 065
  4. GRALISE [Concomitant]
     Indication: NEURALGIA
     Dosage: 600 MG
     Route: 065
  5. NEXIUM [Concomitant]
     Indication: GASTRIC DISORDER
     Dosage: 40 MG
     Route: 065
  6. PREDNISONE [Concomitant]
     Indication: ARTHRITIS
     Dosage: 5 MG
     Route: 065
  7. UROCARE SUPPLEMENT [Concomitant]
     Indication: URINARY TRACT INFECTION
     Dosage: 2 ANZ
     Route: 065
  8. SYNTHROID [Concomitant]
     Route: 065
  9. FERREX [Concomitant]
     Indication: ANAEMIA
     Dosage: 300 MG
     Route: 065
  10. PRAVACHOL [Concomitant]
     Indication: BLOOD CHOLESTEROL INCREASED
     Dosage: 20 MG
     Route: 065
  11. LEFLUNOMIDE [Concomitant]
     Indication: RHEUMATOID ARTHRITIS
     Dosage: 10 MG
     Route: 065
  12. PRISTIQ [Concomitant]
     Indication: DEPRESSION
     Dosage: 100 MG
     Route: 065
  13. VIT D [Concomitant]
     Route: 065
  14. TOVIAZ [Concomitant]
     Indication: HYPERTONIC BLADDER
     Route: 065
  15. LAXATIVE-SENNA [Concomitant]
     Indication: CONSTIPATION
     Dosage: 17.2 MG
     Route: 065
  16. ZYPREXA [Concomitant]
     Indication: AGITATION
     Route: 065
  17. XARELTO [Concomitant]
     Indication: THROMBOSIS
     Route: 065
  18. NEURONTIN [Concomitant]
     Indication: NEURALGIA
     Dosage: 20 MG
     Route: 065
  19. LORTAB [Concomitant]
     Indication: PAIN
     Route: 065
  20. ONDANSETRON [Concomitant]
     Indication: NAUSEA
     Route: 065
  21. VIT B12 [Concomitant]
     Route: 065
  22. LIBRAX [Concomitant]
     Indication: DIVERTICULITIS
     Dosage: 5 MG-2.5 MG
     Route: 065
  23. OPTIVE [Concomitant]
     Indication: DRY EYE
     Route: 065
  24. SYSTANE [Concomitant]
     Indication: DRY EYE
     Route: 065

REACTIONS (4)
  - Dyspnoea [Fatal]
  - Blood pressure fluctuation [Unknown]
  - Pulmonary embolism [Unknown]
  - Pain [Unknown]
